FAERS Safety Report 17483988 (Version 2)
Quarter: 2020Q2

REPORT INFORMATION
  Report Type: Report from Study
  Country: US (occurrence: US)
  Receive Date: 20200302
  Receipt Date: 20200401
  Transmission Date: 20200713
  Serious: Yes (Hospitalization, Other)
  Sender: FDA-Public Use
  Company Number: US-BRISTOL-MYERS SQUIBB COMPANY-BMS-2020-016558

PATIENT
  Age: 74 Year
  Sex: Male

DRUGS (3)
  1. IPILIMUMAB [Suspect]
     Active Substance: IPILIMUMAB
     Indication: MYELODYSPLASTIC SYNDROME
     Dosage: 1 MILLIGRAM/KILOGRAM
     Route: 042
  2. NIVOLUMAB [Suspect]
     Active Substance: NIVOLUMAB
     Indication: MYELODYSPLASTIC SYNDROME
     Dosage: 3 MILLIGRAM/KILOGRAM
     Route: 042
  3. 5-AZACYTIDINE [Suspect]
     Active Substance: AZACITIDINE
     Indication: MYELODYSPLASTIC SYNDROME
     Route: 065

REACTIONS (1)
  - Autoimmune disorder [Recovered/Resolved]

NARRATIVE: CASE EVENT DATE: 20200224
